FAERS Safety Report 15148042 (Version 1)
Quarter: 2018Q3

REPORT INFORMATION
  Report Type: Spontaneous
  Country: BE (occurrence: BE)
  Receive Date: 20180716
  Receipt Date: 20180716
  Transmission Date: 20181010
  Serious: Yes (Other)
  Sender: FDA-Public Use
  Company Number: BE-BAYER-2018-109598

PATIENT
  Age: 66 Year
  Sex: Male
  Weight: 77 kg

DRUGS (1)
  1. AVELOX [Suspect]
     Active Substance: MOXIFLOXACIN HYDROCHLORIDE
     Dosage: 400 MG, QD
     Route: 048
     Dates: start: 20180521, end: 20180522

REACTIONS (4)
  - Diarrhoea haemorrhagic [Recovered/Resolved]
  - Mucosal inflammation [Recovering/Resolving]
  - Diarrhoea [Recovering/Resolving]
  - Abdominal pain [Recovering/Resolving]

NARRATIVE: CASE EVENT DATE: 20180523
